FAERS Safety Report 10215130 (Version 5)
Quarter: 2014Q4

REPORT INFORMATION
  Report Type: Report from Study
  Country: US (occurrence: US)
  Receive Date: 20140603
  Receipt Date: 20141006
  Transmission Date: 20150528
  Serious: Yes (Other)
  Sender: FDA-Public Use
  Company Number: US-SA-2014SA050226

PATIENT
  Age: 62 Year
  Sex: Female
  Weight: 91.7 kg

DRUGS (20)
  1. AUBAGIO [Suspect]
     Active Substance: TERIFLUNOMIDE
     Indication: MULTIPLE SCLEROSIS
     Route: 048
     Dates: start: 20140410
  2. L-THYROXINE [Concomitant]
     Active Substance: LEVOTHYROXINE
  3. WELLBUTRIN [Concomitant]
     Active Substance: BUPROPION HYDROCHLORIDE
  4. BACLOFEN. [Concomitant]
     Active Substance: BACLOFEN
  5. TYLENOL WITH CODEINE [Concomitant]
     Active Substance: ACETAMINOPHEN\CODEINE PHOSPHATE
  6. METOPROLOL [Concomitant]
     Active Substance: METOPROLOL
  7. ALL OTHER THERAPEUTIC PRODUCTS [Concomitant]
     Active Substance: UNSPECIFIED INGREDIENT
  8. CLOZARIL [Concomitant]
     Active Substance: CLOZAPINE
     Dosage: 150 MG Q A.M. AND 150 MG Q P.M.
  9. TOPAMAX [Concomitant]
     Active Substance: TOPIRAMATE
  10. MULTIVITAMINS [Concomitant]
     Active Substance: VITAMINS
  11. LIPITOR [Concomitant]
     Active Substance: ATORVASTATIN CALCIUM
  12. AMBIEN [Concomitant]
     Active Substance: ZOLPIDEM TARTRATE
  13. ASPIRIN. [Concomitant]
     Active Substance: ASPIRIN
  14. ADVAIR HFA [Concomitant]
     Active Substance: FLUTICASONE PROPIONATE\SALMETEROL XINAFOATE
     Dosage: 100/50 EVERY 4 HOURS P.R.N.
  15. FISH OIL [Concomitant]
     Active Substance: FISH OIL
  16. AUBAGIO [Suspect]
     Active Substance: TERIFLUNOMIDE
     Indication: MULTIPLE SCLEROSIS
     Route: 048
     Dates: start: 20140115
  17. AUBAGIO [Suspect]
     Active Substance: TERIFLUNOMIDE
     Indication: MULTIPLE SCLEROSIS
     Route: 048
     Dates: start: 20140505
  18. CLONAZEPAM. [Concomitant]
     Active Substance: CLONAZEPAM
  19. PLAQUENIL [Concomitant]
     Active Substance: HYDROXYCHLOROQUINE SULFATE
  20. VITAMIN D [Concomitant]
     Active Substance: CHOLECALCIFEROL

REACTIONS (16)
  - Vomiting [Recovering/Resolving]
  - Fall [Unknown]
  - Nodule [Unknown]
  - Upper limb fracture [Unknown]
  - Pyrexia [Recovered/Resolved]
  - Cough [Recovered/Resolved]
  - Respiratory tract infection [Recovered/Resolved]
  - Faecal incontinence [Recovering/Resolving]
  - Scoliosis [Unknown]
  - Nausea [Recovered/Resolved]
  - Nasopharyngitis [Recovered/Resolved]
  - Intervertebral disc protrusion [Unknown]
  - Gastrooesophageal reflux disease [Not Recovered/Not Resolved]
  - Oral herpes [Recovered/Resolved]
  - Diarrhoea [Unknown]
  - Renal pain [Unknown]

NARRATIVE: CASE EVENT DATE: 20140428
